FAERS Safety Report 22190111 (Version 1)
Quarter: 2023Q2

REPORT INFORMATION
  Report Type: Spontaneous
  Country: US (occurrence: US)
  Receive Date: 20230410
  Receipt Date: 20230410
  Transmission Date: 20230722
  Serious: No
  Sender: FDA-Public Use
  Company Number: US-AVEO ONCOLOGY-2022-AVEO-US000610

PATIENT

DRUGS (23)
  1. FOTIVDA [Suspect]
     Active Substance: TIVOZANIB HYDROCHLORIDE
     Indication: Renal cell carcinoma
     Dosage: 1.34 MG, DAILY FOR 21 DAYS WITH 7 DAYS OFF (21-DAY CYCLE)
     Route: 048
     Dates: start: 20220418, end: 2022
  2. AMLODIPINE [Concomitant]
     Active Substance: AMLODIPINE BESYLATE
  3. CALCIUM\VITAMIN D [Concomitant]
     Active Substance: CALCIUM\VITAMIN D
  4. CAPSAICIN [Concomitant]
     Active Substance: CAPSAICIN
  5. VITAMINS [Concomitant]
     Active Substance: VITAMINS
  6. CITALOPRAM [Concomitant]
     Active Substance: CITALOPRAM HYDROBROMIDE
  7. COLCHICINE [Concomitant]
     Active Substance: COLCHICINE
  8. DULOXETINE [Concomitant]
     Active Substance: DULOXETINE
  9. DEXAMETHASONE [Concomitant]
     Active Substance: DEXAMETHASONE
  10. ELIQUIS [Concomitant]
     Active Substance: APIXABAN
  11. FUROSEMIDE [Concomitant]
     Active Substance: FUROSEMIDE
  12. HUMULIN N [Concomitant]
     Active Substance: INSULIN HUMAN
  13. IPRATROPIUM [Concomitant]
     Active Substance: IPRATROPIUM
  14. LEVOTHYROXINE [Concomitant]
     Active Substance: LEVOTHYROXINE
  15. LIDOCAINE [Concomitant]
     Active Substance: LIDOCAINE
  16. NORCO [Concomitant]
     Active Substance: ACETAMINOPHEN\HYDROCODONE BITARTRATE
  17. ONDANSETRON [Concomitant]
     Active Substance: ONDANSETRON
  18. OXYCODONE [Concomitant]
     Active Substance: OXYCODONE
  19. PREDNISONE [Concomitant]
     Active Substance: PREDNISONE
  20. SENNA [Concomitant]
     Active Substance: SENNA LEAF\SENNOSIDES\SENNOSIDES A AND B
  21. TIZANIDINE [Concomitant]
     Active Substance: TIZANIDINE
  22. TRAZODONE [Concomitant]
     Active Substance: TRAZODONE HYDROCHLORIDE
  23. BACTRIM [Concomitant]
     Active Substance: SULFAMETHOXAZOLE\TRIMETHOPRIM

REACTIONS (3)
  - Malignant neoplasm progression [Unknown]
  - Metastases to bone [Unknown]
  - Metastases to lung [Unknown]
